FAERS Safety Report 12522798 (Version 1)
Quarter: 2016Q3

REPORT INFORMATION
  Report Type: Spontaneous
  Country: US (occurrence: US)
  Receive Date: 20160701
  Receipt Date: 20160701
  Transmission Date: 20161109
  Serious: No
  Sender: FDA-Public Use
  Company Number: US-009507513-1606USA011084

PATIENT
  Age: 58 Year
  Sex: Male

DRUGS (3)
  1. BELSOMRA [Suspect]
     Active Substance: SUVOREXANT
     Indication: INSOMNIA
  2. BELSOMRA [Suspect]
     Active Substance: SUVOREXANT
     Indication: CIRCADIAN RHYTHM SLEEP DISORDER
     Dosage: 10 MG, FOR THE FIRST TIME LAST NIGHT
     Route: 048
     Dates: start: 20160620
  3. COZAAR [Concomitant]
     Active Substance: LOSARTAN POTASSIUM

REACTIONS (1)
  - Drug effect incomplete [Unknown]

NARRATIVE: CASE EVENT DATE: 201606
